FAERS Safety Report 6809625-7 (Version None)
Quarter: 2010Q2

REPORT INFORMATION
  Report Type: 
  Country: None (occurrence: None)
  Receive Date: 20100630
  Receipt Date: 20100621
  Transmission Date: 20101027
  Serious: Yes (Other)
  Sender: FDA-Public Use
  Company Number: US-PFIZER INC-2006118865

PATIENT
  Sex: Female
  Weight: 62.6 kg

DRUGS (4)
  1. CHANTIX [Suspect]
     Dosage: 0.5 MG, UNK
     Dates: start: 20060901
  2. BENADRYL [Concomitant]
     Indication: HYPERSENSITIVITY
     Dosage: UNK
  3. REMERON [Concomitant]
     Indication: INSOMNIA
     Dosage: UNK
  4. REMERON [Concomitant]

REACTIONS (2)
  - DEPRESSION [None]
  - MEMORY IMPAIRMENT [None]
